FAERS Safety Report 10736213 (Version 1)
Quarter: 2015Q1

REPORT INFORMATION
  Report Type: Spontaneous
  Country: DK (occurrence: None)
  Receive Date: 20150121
  Receipt Date: 20150121
  Transmission Date: 20150721
  Serious: Yes (Hospitalization, Other)
  Sender: FDA-Public Use
  Company Number: DK-DEXPHARM-20150007

PATIENT
  Age: 41 Year
  Sex: Female

DRUGS (1)
  1. CHLORHEXIDINE ALCOHOL [Suspect]
     Active Substance: ALCOHOL\CHLORHEXIDINE GLUCONATE
     Indication: PREOPERATIVE CARE

REACTIONS (6)
  - Burns second degree [None]
  - Procedural complication [None]
  - Skin graft [None]
  - Burns third degree [None]
  - Hypertrophic scar [None]
  - Accident [None]
